FAERS Safety Report 5946165-1 (Version None)
Quarter: 2008Q4

REPORT INFORMATION
  Report Type: 
  Country: None (occurrence: None)
  Receive Date: 20081106
  Receipt Date: 20081106
  Transmission Date: 20090506
  Serious: Yes (Hospitalization)
  Sender: FDA-Public Use
  Company Number: None

PATIENT
  Age: 60 Year
  Sex: Male
  Weight: 132.45 kg

DRUGS (1)
  1. MOXIFLOXACIN HCL [Suspect]
     Indication: INJECTION
     Dosage: 400 MG EVERY DAY PO
     Route: 048
     Dates: start: 20081008, end: 20081022

REACTIONS (1)
  - DRUG HYPERSENSITIVITY [None]
